FAERS Safety Report 7513222-8 (Version None)
Quarter: 2011Q2

REPORT INFORMATION
  Report Type: 
  Country: None (occurrence: None)
  Receive Date: 20110525
  Receipt Date: 20110525
  Transmission Date: 20111010
  Serious: Yes (Other)
  Sender: FDA-Public Use
  Company Number: None

PATIENT
  Sex: Female
  Weight: 117.9352 kg

DRUGS (2)
  1. AZITHROMYCIN [Suspect]
     Indication: AMMONIA
     Dosage: 250MG 1/DAY
     Dates: start: 20110408, end: 20110412
  2. AZITHROMYCIN [Suspect]
     Indication: SINUS DISORDER
     Dosage: 250MG 1/DAY
     Dates: start: 20110408, end: 20110412

REACTIONS (1)
  - DEAFNESS BILATERAL [None]
